FAERS Safety Report 4350497-0 (Version None)
Quarter: 2004Q2

REPORT INFORMATION
  Report Type: 
  Country: None (occurrence: None)
  Receive Date: 20040430
  Receipt Date: 20040322
  Transmission Date: 20050107
  Serious: Yes (Death, Other)
  Sender: FDA-Public Use
  Company Number: US-BRISTOL-MYERS SQUIBB COMPANY-12539185

PATIENT
  Age: 27 Year
  Sex: Female
  Weight: 118 kg

DRUGS (4)
  1. ABILIFY [Suspect]
     Indication: HALLUCINATION, AUDITORY
     Dosage: INITIATED AT 10 MG/DAY
     Route: 048
     Dates: start: 20030724
  2. ABILIFY [Suspect]
     Indication: MOOD SWINGS
     Dosage: INITIATED AT 10 MG/DAY
     Route: 048
     Dates: start: 20030724
  3. LAMICTAL [Concomitant]
     Dosage: VARYING DOSES
     Dates: start: 20020724
  4. GEODON [Concomitant]

REACTIONS (4)
  - MANIA [None]
  - SUDDEN CARDIAC DEATH [None]
  - SUICIDAL IDEATION [None]
  - TREATMENT NONCOMPLIANCE [None]
